FAERS Safety Report 7970053-2 (Version None)
Quarter: 2011Q4

REPORT INFORMATION
  Report Type: 
  Country: None (occurrence: None)
  Receive Date: 20111212
  Receipt Date: 20111206
  Transmission Date: 20120403
  Serious: No
  Sender: FDA-Public Use
  Company Number: US-BAYER-2011-118329

PATIENT
  Age: 60 Year
  Sex: Female
  Weight: 104 kg

DRUGS (4)
  1. LISINOPRIL [Concomitant]
  2. DICLOFENAC AL [Concomitant]
  3. FISH OIL [Concomitant]
  4. ALEVE (CAPLET) [Suspect]
     Dosage: UNK
     Route: 048
     Dates: start: 20111206

REACTIONS (1)
  - PYREXIA [None]
